FAERS Safety Report 19251258 (Version 1)
Quarter: 2021Q2

REPORT INFORMATION
  Report Type: Spontaneous
  Country: US (occurrence: US)
  Receive Date: 20210513
  Receipt Date: 20210513
  Transmission Date: 20210717
  Serious: Yes (Hospitalization)
  Sender: FDA-Public Use
  Company Number: US-AMGEN-USASP2021071749

PATIENT
  Age: 61 Year
  Sex: Female

DRUGS (2)
  1. ALVESCO [Concomitant]
     Active Substance: CICLESONIDE
     Dosage: UNK
  2. OTEZLA [Suspect]
     Active Substance: APREMILAST
     Indication: PSORIASIS
     Dosage: 30 MILLIGRAM, BID
     Route: 048
     Dates: start: 20161122

REACTIONS (1)
  - Appendix disorder [Not Recovered/Not Resolved]
